FAERS Safety Report 20425792 (Version 1)
Quarter: 2022Q1

REPORT INFORMATION
  Report Type: Report from Study
  Country: US (occurrence: US)
  Receive Date: 20220204
  Receipt Date: 20220204
  Transmission Date: 20220423
  Serious: No
  Sender: FDA-Public Use
  Company Number: US-EXELIXIS-CABO-21039828

PATIENT
  Sex: Female
  Weight: 93.787 kg

DRUGS (5)
  1. CABOMETYX [Suspect]
     Active Substance: CABOZANTINIB S-MALATE
     Indication: Bone cancer
     Dosage: 40 MG, QD
     Route: 048
  2. ETOPOSIDE [Suspect]
     Active Substance: ETOPOSIDE
     Indication: Product used for unknown indication
     Dosage: UNK
     Route: 065
  3. CYTOXAN [Suspect]
     Active Substance: CYCLOPHOSPHAMIDE
     Indication: Product used for unknown indication
     Dosage: UNK
     Route: 065
  4. VEPESID [Concomitant]
     Active Substance: ETOPOSIDE
     Dosage: UNK
  5. RAPAMUNE [Concomitant]
     Active Substance: SIROLIMUS
     Dosage: UNK

REACTIONS (3)
  - Osteomyelitis [Unknown]
  - Laboratory test abnormal [Unknown]
  - Off label use [Unknown]
